FAERS Safety Report 4276382-0 (Version None)
Quarter: 2004Q1

REPORT INFORMATION
  Report Type: 
  Country: None (occurrence: None)
  Receive Date: 20040120
  Receipt Date: 20040108
  Transmission Date: 20041129
  Serious: Yes (Other)
  Sender: FDA-Public Use
  Company Number: 2004001696

PATIENT
  Age: 75 Year
  Sex: Male
  Weight: 77.1115 kg

DRUGS (5)
  1. NEURONTIN [Suspect]
     Indication: HYPOAESTHESIA
     Dosage: 1200 MG (TID), ORAL
     Route: 048
  2. TELMISARTAN (TELMISARTAN) [Concomitant]
  3. ESOMEPRAZOLE (ESOMEPRAZOLE) [Concomitant]
  4. ATORVASTATIN (ATORVASTATIN) [Concomitant]
  5. ACETYLSALICYLIC ACID SRT [Concomitant]

REACTIONS (6)
  - CATARACT [None]
  - CONDITION AGGRAVATED [None]
  - HYPOAESTHESIA [None]
  - PAIN [None]
  - PARAESTHESIA [None]
  - POST PROCEDURAL COMPLICATION [None]
